FAERS Safety Report 20836551 (Version 1)
Quarter: 2022Q2

REPORT INFORMATION
  Report Type: Spontaneous
  Country: US (occurrence: US)
  Receive Date: 20220517
  Receipt Date: 20220517
  Transmission Date: 20220721
  Serious: Yes (Death)
  Sender: FDA-Public Use
  Company Number: US-SPECGX-T202201191

PATIENT
  Age: 53 Year
  Sex: Male

DRUGS (1)
  1. FENTANYL TRANSDERMAL SYSTEM [Suspect]
     Active Substance: FENTANYL
     Indication: Pain
     Dosage: UNK
     Route: 062
     Dates: start: 2022

REACTIONS (4)
  - Abscess [Fatal]
  - Death [Fatal]
  - Burning sensation [Unknown]
  - Rash [Unknown]

NARRATIVE: CASE EVENT DATE: 20220401
